FAERS Safety Report 25913412 (Version 1)
Quarter: 2025Q4

REPORT INFORMATION
  Report Type: Spontaneous
  Country: EU (occurrence: EU)
  Receive Date: 20251013
  Receipt Date: 20251013
  Transmission Date: 20260118
  Serious: Yes (Hospitalization, Other)
  Sender: CIPLA
  Company Number: EU-AFSSAPS-AN2025001228

PATIENT

DRUGS (6)
  1. ESOMEPRAZOLE [Suspect]
     Active Substance: ESOMEPRAZOLE
     Indication: Product used for unknown indication
     Dosage: 20 MILLIGRAM, QD
     Route: 048
  2. QUETIAPINE [Suspect]
     Active Substance: QUETIAPINE
     Indication: Mental disorder
     Dosage: 300 MILLIGRAM, QD
     Route: 048
     Dates: end: 20250919
  3. VENLAFAXINE [Suspect]
     Active Substance: VENLAFAXINE HYDROCHLORIDE
     Indication: Depression
     Dosage: 225 MILLIGRAM, QD
     Route: 048
  4. MIRTAZAPINE [Suspect]
     Active Substance: MIRTAZAPINE
     Indication: Depression
     Dosage: 15 MILLIGRAM, QD
     Route: 048
  5. ACAMPROSATE [Suspect]
     Active Substance: ACAMPROSATE
     Indication: Alcohol detoxification
     Dosage: 1998 MILLIGRAM, QD
     Route: 048
  6. NALTREXONE [Suspect]
     Active Substance: NALTREXONE
     Indication: Alcohol detoxification
     Dosage: 50 MILLIGRAM, QD
     Route: 048

REACTIONS (1)
  - Pulmonary embolism [Recovered/Resolved]

NARRATIVE: CASE EVENT DATE: 20250913
